FAERS Safety Report 12184126 (Version 1)
Quarter: 2016Q1

REPORT INFORMATION
  Report Type: Spontaneous
  Country: US (occurrence: US)
  Receive Date: 20160316
  Receipt Date: 20160316
  Transmission Date: 20160526
  Serious: Yes (Death, Other)
  Sender: FDA-Public Use
  Company Number: US-ARBOR PHARMACEUTICALS, LLC-US-2015ARB000059

PATIENT

DRUGS (1)
  1. GLIADEL [Suspect]
     Active Substance: CARMUSTINE
     Indication: GLIOBLASTOMA
     Dosage: UNK

REACTIONS (3)
  - Depression [Unknown]
  - Nausea [Unknown]
  - Death [Fatal]
